FAERS Safety Report 9626260 (Version 2)
Quarter: 2013Q4

REPORT INFORMATION
  Report Type: Spontaneous
  Country: FR (occurrence: FR)
  Receive Date: 20131016
  Receipt Date: 20131016
  Transmission Date: 20140711
  Serious: Yes (Hospitalization)
  Sender: FDA-Public Use
  Company Number: FR-SANOFI-AVENTIS-2013SA051317

PATIENT
  Age: 45 Year
  Sex: Male
  Weight: 80 kg

DRUGS (31)
  1. LOVENOX [Suspect]
     Indication: PRODUCT USED FOR UNKNOWN INDICATION
     Route: 058
     Dates: start: 20130403
  2. SOLUPRED [Suspect]
     Indication: CONNECTIVE TISSUE DISORDER
     Dosage: DOSE:10 TO 15 MG
     Route: 048
     Dates: start: 20120512, end: 20130425
  3. SOLUPRED [Suspect]
     Indication: CONNECTIVE TISSUE DISORDER
     Route: 048
     Dates: end: 20130511
  4. ESIDREX [Suspect]
     Indication: PRODUCT USED FOR UNKNOWN INDICATION
     Route: 048
     Dates: start: 20130402
  5. ESIDREX [Suspect]
     Indication: PRODUCT USED FOR UNKNOWN INDICATION
     Route: 048
     Dates: end: 20130425
  6. SINGULAIR [Concomitant]
     Dates: end: 20130330
  7. SYMBICORT [Concomitant]
     Dates: end: 20130330
  8. VENTOLINE [Concomitant]
     Dates: end: 20130330
  9. AMLOR [Concomitant]
     Dates: end: 20130330
  10. JANUMET [Concomitant]
     Dates: end: 20130330
  11. JOSAMYCIN [Concomitant]
     Dates: end: 20130330
  12. DAFALGAN CODEINE [Concomitant]
     Dates: end: 20130410
  13. CRESTOR [Concomitant]
     Dates: end: 20130425
  14. DOMPERIDONE [Concomitant]
  15. LUMIRELAX [Concomitant]
     Dates: end: 20130410
  16. NABUCOX [Concomitant]
     Dates: end: 20130410
  17. TRAMADOL [Concomitant]
  18. ZOLPIDEM [Concomitant]
  19. PROFENID [Concomitant]
  20. FUROSEMIDE [Concomitant]
     Dates: start: 20130330, end: 20130412
  21. DIFFU K [Concomitant]
     Dates: start: 20130330, end: 20130408
  22. TOPALGIC [Concomitant]
     Dates: start: 20130330
  23. FRAGMIN [Concomitant]
     Dates: start: 20130331, end: 20130403
  24. APIDRA [Concomitant]
     Dates: start: 20130331
  25. BISOPROLOL [Concomitant]
     Dates: start: 20130331
  26. KARDEGIC [Concomitant]
     Dates: start: 20130331
  27. LANTUS [Concomitant]
     Dates: start: 20130403
  28. HUMALOG [Concomitant]
     Dates: start: 20130403, end: 20130412
  29. LIPANTHYL [Concomitant]
     Dates: start: 20130410, end: 20130425
  30. ZYLORIC [Concomitant]
     Dates: end: 20130412
  31. AMIODARONE [Concomitant]
     Dates: end: 20130412

REACTIONS (10)
  - Diabetes mellitus [Recovering/Resolving]
  - Vasculitis necrotising [Recovered/Resolved]
  - Necrosis [Unknown]
  - Peripheral coldness [Unknown]
  - Pallor [Unknown]
  - Skin lesion [Unknown]
  - Dermatitis bullous [Unknown]
  - Skin haemorrhage [Unknown]
  - Mouth ulceration [Unknown]
  - Skin ulcer [Unknown]
